FAERS Safety Report 5274978-0 (Version None)
Quarter: 2007Q1

REPORT INFORMATION
  Report Type: 
  Country: None (occurrence: None)
  Receive Date: 20061207
  Receipt Date: 20040707
  Transmission Date: 20070707
  Serious: No
  Sender: FDA-Public Use
  Company Number: 2004UW11784

PATIENT
  Age: 51 Year
  Sex: Male
  Weight: 77.1115 kg

DRUGS (3)
  1. TOPROL-XL [Suspect]
     Indication: HYPERTENSION
     Dosage: 200 MG HS PO
     Route: 048
     Dates: start: 20031101, end: 20040524
  2. THYROID TAB [Concomitant]
  3. PREDNISONE [Concomitant]

REACTIONS (8)
  - DEPRESSION [None]
  - ERECTILE DYSFUNCTION [None]
  - FATIGUE [None]
  - LOSS OF LIBIDO [None]
  - MOOD ALTERED [None]
  - NAUSEA [None]
  - RAYNAUD'S PHENOMENON [None]
  - WEIGHT INCREASED [None]
